FAERS Safety Report 19909447 (Version 1)
Quarter: 2021Q4

REPORT INFORMATION
  Report Type: Spontaneous
  Country: US (occurrence: US)
  Receive Date: 20211001
  Receipt Date: 20211001
  Transmission Date: 20220303
  Serious: No
  Sender: FDA-Public Use
  Company Number: US-AMARIN PHARMA, INC.-2021AMR000366

PATIENT
  Age: 39 Year
  Sex: Female

DRUGS (2)
  1. VASCEPA [Suspect]
     Active Substance: ICOSAPENT ETHYL
     Indication: Cardiovascular event prophylaxis
     Route: 048
     Dates: start: 2021, end: 2021
  2. VASCEPA [Suspect]
     Active Substance: ICOSAPENT ETHYL
     Route: 048
     Dates: start: 2020

REACTIONS (2)
  - Photosensitivity reaction [Unknown]
  - Sunburn [Unknown]

NARRATIVE: CASE EVENT DATE: 20210101
